FAERS Safety Report 4630697-2 (Version None)
Quarter: 2005Q2

REPORT INFORMATION
  Report Type: 
  Country: None (occurrence: None)
  Receive Date: 20050408
  Receipt Date: 20030130
  Transmission Date: 20051028
  Serious: Yes (Hospitalization)
  Sender: FDA-Public Use
  Company Number: JP-ROCHE-330824

PATIENT
  Age: 60 Year
  Sex: Female
  Weight: 50.6 kg

DRUGS (20)
  1. MYCOPHENOLATE MOFETIL [Suspect]
     Route: 048
     Dates: start: 20020405, end: 20020626
  2. MYCOPHENOLATE MOFETIL [Suspect]
     Route: 048
     Dates: start: 20020627, end: 20030228
  3. PREDONINE [Suspect]
     Route: 048
     Dates: start: 20020403
  4. PREDONINE [Suspect]
     Route: 065
     Dates: start: 20020403
  5. PROGRAF [Suspect]
     Route: 048
     Dates: start: 20020402
  6. PROGRAF [Suspect]
     Route: 041
     Dates: start: 20020402
  7. SOLU-MEDROL [Concomitant]
     Route: 042
     Dates: start: 20020402, end: 20020402
  8. GASTER (JAPAN) [Concomitant]
     Indication: GASTRIC ULCER
     Route: 048
     Dates: start: 20020405, end: 20020526
  9. OMEPRAL [Concomitant]
     Indication: GASTRIC ULCER
     Route: 048
     Dates: start: 20020527
  10. ALLOID [Concomitant]
     Indication: GASTRIC ULCER
     Dosage: DOSEFORM REPORTED AS ORAL FORMULATION.
     Route: 048
     Dates: start: 20020405
  11. LASIX [Concomitant]
     Indication: RENAL TRANSPLANT
     Route: 048
     Dates: start: 20020405
  12. SIGMART [Concomitant]
     Indication: MYOCARDIAL INFARCTION
     Route: 048
     Dates: start: 20020426
  13. RENIVACE [Concomitant]
     Indication: MYOCARDIAL INFARCTION
     Route: 048
     Dates: start: 20020426
  14. BUFFERIN [Concomitant]
     Indication: MYOCARDIAL INFARCTION
     Route: 048
     Dates: start: 20020426
  15. ITOROL [Concomitant]
     Indication: MYOCARDIAL INFARCTION
     Route: 048
     Dates: start: 20020429
  16. ZYLORIC [Concomitant]
     Indication: HYPERURICAEMIA
     Route: 048
     Dates: start: 20020514
  17. DENOSINE [Concomitant]
     Route: 042
     Dates: start: 20020529, end: 20020701
  18. NITROGLYCERIN [Concomitant]
     Indication: MYOCARDIAL INFARCTION
     Route: 065
     Dates: start: 20020426, end: 20020429
  19. PENTCILLIN [Concomitant]
     Indication: UPPER RESPIRATORY TRACT INFECTION
     Route: 041
     Dates: start: 20021213, end: 20021216
  20. RABEPRAZOLE SODIUM [Concomitant]
     Route: 048
     Dates: start: 20030314

REACTIONS (6)
  - CYTOMEGALOVIRUS INFECTION [None]
  - DIABETES MELLITUS [None]
  - GASTROENTERITIS [None]
  - HYPERURICAEMIA [None]
  - MYOCARDIAL INFARCTION [None]
  - UPPER RESPIRATORY TRACT INFLAMMATION [None]
